FAERS Safety Report 4783959-2 (Version None)
Quarter: 2005Q3

REPORT INFORMATION
  Report Type: 
  Country: None (occurrence: None)
  Receive Date: 20050927
  Receipt Date: 20050801
  Transmission Date: 20060218
  Serious: No
  Sender: FDA-Public Use
  Company Number: USA0508104351

PATIENT
  Age: 47 Year
  Sex: Male

DRUGS (3)
  1. STRATTERA [Suspect]
     Indication: ATTENTION DEFICIT/HYPERACTIVITY DISORDER
     Dosage: 80 MG
     Dates: start: 20050701
  2. LISINOPRIL [Concomitant]
  3. DILTIAZEM [Concomitant]

REACTIONS (2)
  - EJACULATION DISORDER [None]
  - SOMNOLENCE [None]
